FAERS Safety Report 5041912-8 (Version None)
Quarter: 2006Q2

REPORT INFORMATION
  Report Type: 
  Country: None (occurrence: None)
  Receive Date: 20060630
  Receipt Date: 20060621
  Transmission Date: 20061013
  Serious: Yes (Hospitalization)
  Sender: FDA-Public Use
  Company Number: 2006-06-1609

PATIENT
  Age: 59 Year
  Sex: Female

DRUGS (5)
  1. PEG-INTRON [Suspect]
     Indication: HEPATITIS C
     Dosage: SUBCUTANEOUS
     Route: 058
     Dates: start: 20060407
  2. RIBAVIRIN [Suspect]
     Indication: HEPATITIS C
     Dosage: ORAL
     Route: 048
     Dates: start: 20060407
  3. GABAPENTIN [Concomitant]
  4. ACETAMINOPHEN/OXYCODONE CAPSULES [Concomitant]
  5. QUININE SULFATE CAPSULES [Concomitant]

REACTIONS (4)
  - ANAEMIA [None]
  - PLEURISY [None]
  - PNEUMONIA [None]
  - PULMONARY OEDEMA [None]
